FAERS Safety Report 6331900 (Version 2)
Quarter: 2012Q4

REPORT INFORMATION
  Report Type: 
  Country: CA (occurrence: CA)
  Receive Date: 20070613
  Receipt Date: 20120829
  Transmission Date: 20130627
  Serious: Yes (Other)
  Sender: FDA-Public Use
  Company Number: CA-ELI_LILLY_AND_COMPANY-CA200706002227

PATIENT
  Age: 47 Year
  Sex: Male

DRUGS (9)
  1. ZYPREXA [Suspect]
     Indication: DEPRESSION
     Dosage: 5 mg,
     Route: 048
     Dates: start: 20050201
  2. ZYPREXA [Suspect]
     Dosage: 2.5 mg, each evening
     Dates: start: 20061023
  3. ZYPREXA [Suspect]
     Dosage: 10 mg, 2/D
     Dates: end: 200703
  4. ZYPREXA [Suspect]
     Dosage: 7.5 mg, each evening
  5. EFFEXOR [Concomitant]
     Indication: DEPRESSION
     Dosage: 75 mg, UNK
     Dates: start: 20041130, end: 200703
  6. ZOPICLONE [Concomitant]
     Dosage: UNK
  7. NORTRIPTYLINE [Concomitant]
  8. SEROQUEL [Concomitant]
  9. REMERON [Concomitant]

REACTIONS (6)
  - Pathological gambling [Recovered/Resolved]
  - Chronic sinusitis [Unknown]
  - Blood cholesterol increased [Unknown]
  - Blood glucose increased [Unknown]
  - Aspartate aminotransferase increased [Unknown]
  - Off label use [Unknown]
